FAERS Safety Report 5673012-8 (Version None)
Quarter: 2008Q2

REPORT INFORMATION
  Report Type: 
  Country: None (occurrence: None)
  Receive Date: 20080219
  Receipt Date: 20080102
  Transmission Date: 20081010
  Serious: No
  Sender: FDA-Public Use
  Company Number: TPA2008A00012

PATIENT
  Age: 47 Year
  Sex: Male
  Weight: 136.0791 kg

DRUGS (11)
  1. ROZEREM [Suspect]
     Indication: INSOMNIA
     Dosage: 8 MG, QHS, PER ORAL
     Route: 048
     Dates: start: 20071001
  2. AMBIEN [Concomitant]
  3. GABAPENTIN [Concomitant]
  4. TRIAMTERENE AND HYDROCHLOROTHIAZIDE [Concomitant]
  5. DIOVAN [Concomitant]
  6. NIASPAN ER (NICOTINIC ACID) [Concomitant]
  7. SIMVASTATIN [Concomitant]
  8. METFORMIN ER (METFORMIN) [Concomitant]
  9. SOMA [Concomitant]
  10. XANAX [Concomitant]
  11. TESTOSTERONE ENANTHATE (TESTOSTERONE ENANTATE) [Concomitant]

REACTIONS (4)
  - ASTHENIA [None]
  - CONDITION AGGRAVATED [None]
  - LIBIDO DECREASED [None]
  - MALAISE [None]
